FAERS Safety Report 12411209 (Version 2)
Quarter: 2016Q2

REPORT INFORMATION
  Report Type: Spontaneous
  Country: TR (occurrence: TR)
  Receive Date: 20160527
  Receipt Date: 20160531
  Transmission Date: 20160815
  Serious: Yes (Other)
  Sender: FDA-Public Use
  Company Number: TR-MYLANLABS-2016M1021297

PATIENT

DRUGS (7)
  1. LITHIUM. [Suspect]
     Active Substance: LITHIUM
     Indication: BIPOLAR DISORDER
     Dosage: 1200 MG/DAY, LATER WHICH REDUCED TO 900 MG/DAY
     Route: 065
     Dates: start: 1987, end: 200805
  2. SODIUM VALPROATE [Concomitant]
     Active Substance: VALPROATE SODIUM
     Indication: BIPOLAR DISORDER
     Dosage: 1500 MG/DAY; INITIALLY CONTINUED 11
     Route: 065
     Dates: start: 1987
  3. SODIUM VALPROATE [Concomitant]
     Active Substance: VALPROATE SODIUM
     Dosage: YEARSLATER RESTARTED IN 2009 AND DISCONTINUED ON OWN ACCORD
     Route: 065
     Dates: start: 2009
  4. LITHIUM. [Suspect]
     Active Substance: LITHIUM
     Dosage: 900 MG/DAY, LATER WHICH REDUCED TO 600MG/DAY
     Route: 065
     Dates: start: 200805, end: 200809
  5. LITHIUM. [Suspect]
     Active Substance: LITHIUM
     Dosage: 600 MG/DAY, LATER WHICH REDUCED TO 300MG/DAY
     Route: 065
     Dates: start: 200809, end: 200810
  6. LITHIUM. [Suspect]
     Active Substance: LITHIUM
     Dosage: 300MG/DAY
     Route: 065
     Dates: start: 200810, end: 200812
  7. RISPERIDONE. [Concomitant]
     Active Substance: RISPERIDONE
     Indication: BIPOLAR DISORDER
     Route: 065

REACTIONS (2)
  - Blood creatinine increased [Recovered/Resolved]
  - Renal cyst [Recovered/Resolved]
